FAERS Safety Report 17047194 (Version 6)
Quarter: 2025Q1

REPORT INFORMATION
  Report Type: Report from Study
  Country: CA (occurrence: CA)
  Receive Date: 20191119
  Receipt Date: 20250206
  Transmission Date: 20250408
  Serious: Yes (Hospitalization, Other)
  Sender: TAKEDA
  Company Number: CA-TAKEDA-2019TUS065515

PATIENT
  Age: 41 Year
  Sex: Male

DRUGS (15)
  1. VEDOLIZUMAB [Suspect]
     Active Substance: VEDOLIZUMAB
     Indication: Crohn^s disease
  2. VEDOLIZUMAB [Suspect]
     Active Substance: VEDOLIZUMAB
     Dosage: 300 MILLIGRAM, Q4WEEKS
     Dates: start: 20240406
  3. VEDOLIZUMAB [Suspect]
     Active Substance: VEDOLIZUMAB
     Dosage: 300 MILLIGRAM, Q4WEEKS
     Dates: end: 20241219
  4. PREDNISONE [Concomitant]
     Active Substance: PREDNISONE
  5. ACYCLOVIR [Concomitant]
     Active Substance: ACYCLOVIR
  6. VITAMIN B12 [Concomitant]
     Active Substance: CYANOCOBALAMIN
  7. VITAMIN D NOS [Concomitant]
     Active Substance: CHOLECALCIFEROL\ERGOCALCIFEROL
  8. CANNABIS SATIVA SUBSP. INDICA TOP [Concomitant]
     Active Substance: CANNABIS SATIVA SUBSP. INDICA TOP
  9. RINVOQ [Concomitant]
     Active Substance: UPADACITINIB
  10. CITALOPRAM [Concomitant]
     Active Substance: CITALOPRAM
  11. ONDANSETRON [Concomitant]
     Active Substance: ONDANSETRON
  12. QUETIAPINE [Concomitant]
     Active Substance: QUETIAPINE
  13. CLONAZEPAM [Concomitant]
     Active Substance: CLONAZEPAM
  14. VALACYCLOVIR [Concomitant]
     Active Substance: VALACYCLOVIR HYDROCHLORIDE
  15. RAMIPRIL [Concomitant]
     Active Substance: RAMIPRIL

REACTIONS (6)
  - Crohn^s disease [Unknown]
  - Fistula [Unknown]
  - Poor venous access [Unknown]
  - Off label use [Unknown]
  - Device issue [Unknown]
  - Drug ineffective [Unknown]

NARRATIVE: CASE EVENT DATE: 20240406
